FAERS Safety Report 8596533-7 (Version None)
Quarter: 2012Q3

REPORT INFORMATION
  Report Type: 
  Country: None (occurrence: None)
  Receive Date: 20120806
  Receipt Date: 20120806
  Transmission Date: 20120928
  Serious: Yes (Hospitalization)
  Sender: FDA-Public Use
  Company Number: None

PATIENT
  Sex: Female
  Weight: 83.9154 kg

DRUGS (22)
  1. VITAMIN D [Concomitant]
  2. VALIUM [Concomitant]
  3. ATIVAN [Concomitant]
  4. ASPIRIN [Concomitant]
  5. LOVAZA [Concomitant]
  6. ZOFRAN [Concomitant]
  7. GEMFIBROZIL [Concomitant]
  8. FIBER CAPLET [Concomitant]
  9. CALCIUM CARBONATE [Concomitant]
  10. SYNTHROID [Concomitant]
  11. IRON-FERROUS GLUCONATE [Concomitant]
  12. REMERON [Concomitant]
  13. FISH OIL [Concomitant]
  14. STOOL SOFTENER [Concomitant]
  15. LOMOTIL [Concomitant]
  16. AXITINIB 5 MG PFIZER [Suspect]
     Indication: METASTATIC RENAL CELL CARCINOMA
     Dosage: 5 MG BID PO
     Route: 048
     Dates: start: 20120705, end: 20120726
  17. ACTOS [Concomitant]
  18. LISINOPRIL [Concomitant]
  19. VENLAFAXINE [Concomitant]
  20. AMLODIPINE [Concomitant]
  21. LOVASTATIN [Concomitant]
  22. IBUPROFEN [Concomitant]

REACTIONS (7)
  - BLOOD PRESSURE INCREASED [None]
  - CONFUSIONAL STATE [None]
  - NAUSEA [None]
  - POSTERIOR REVERSIBLE ENCEPHALOPATHY SYNDROME [None]
  - HEADACHE [None]
  - VOMITING [None]
  - DEPRESSED LEVEL OF CONSCIOUSNESS [None]
